FAERS Safety Report 8383741-3 (Version None)
Quarter: 2012Q2

REPORT INFORMATION
  Report Type: 
  Country: None (occurrence: None)
  Receive Date: 20120524
  Receipt Date: 20120515
  Transmission Date: 20120825
  Serious: Yes (Other)
  Sender: FDA-Public Use
  Company Number: US-BAYER-2012-048758

PATIENT
  Age: 54 Year

DRUGS (1)
  1. ASPIRIN [Suspect]

REACTIONS (1)
  - CONVULSION [None]
